FAERS Safety Report 7043835-1 (Version None)
Quarter: 2010Q4

REPORT INFORMATION
  Report Type: 
  Country: None (occurrence: None)
  Receive Date: 20101013
  Receipt Date: 20101006
  Transmission Date: 20110411
  Serious: Yes (Other)
  Sender: FDA-Public Use
  Company Number: DE-PFIZER INC-2010127241

PATIENT
  Age: 71 Year
  Sex: Male

DRUGS (4)
  1. SORTIS [Suspect]
     Dosage: UNK
     Route: 048
     Dates: start: 19920101
  2. IMUREL [Concomitant]
     Dosage: UNK
  3. CORTISONE [Concomitant]
     Dosage: UNK
  4. ASPIRIN [Concomitant]
     Dosage: UNK

REACTIONS (2)
  - DERMATOMYOSITIS [None]
  - NEOPLASM MALIGNANT [None]
